FAERS Safety Report 9295912 (Version 2)
Quarter: 2013Q3

REPORT INFORMATION
  Report Type: Spontaneous
  Country: US (occurrence: US)
  Receive Date: 20130517
  Receipt Date: 20130923
  Transmission Date: 20140515
  Serious: Yes (Death, Life-Threatening, Hospitalization, Other)
  Sender: FDA-Public Use
  Company Number: US-ROCHE-1214241

PATIENT
  Age: 87 Year
  Sex: Female
  Weight: 61.74 kg

DRUGS (8)
  1. RITUXAN [Suspect]
     Indication: CHRONIC INFLAMMATORY DEMYELINATING POLYRADICULONEUROPATHY
     Route: 042
     Dates: start: 20100219, end: 20120822
  2. RITUXAN [Suspect]
     Indication: OFF LABEL USE
     Route: 042
     Dates: start: 20100219, end: 20120822
  3. IVIG [Concomitant]
     Indication: CHRONIC INFLAMMATORY DEMYELINATING POLYRADICULONEUROPATHY
     Route: 042
     Dates: start: 20100610, end: 20110601
  4. TRAMADOL [Concomitant]
     Indication: PAIN
     Route: 048
     Dates: start: 20120724
  5. LABETALOL [Concomitant]
     Indication: HYPOTENSION
     Route: 048
     Dates: start: 2007
  6. L-THYROXIN [Concomitant]
     Indication: HYPOTHYROIDISM
     Route: 048
     Dates: start: 2007
  7. SIMVASTATIN [Concomitant]
     Indication: BLOOD CHOLESTEROL
     Route: 048
     Dates: start: 2007
  8. NEXIUM [Concomitant]
     Indication: GASTROOESOPHAGEAL REFLUX DISEASE
     Route: 048

REACTIONS (6)
  - Progressive multifocal leukoencephalopathy [Unknown]
  - Dysarthria [Not Recovered/Not Resolved]
  - Hemiparesis [Not Recovered/Not Resolved]
  - Muscular weakness [Unknown]
  - Convulsion [Recovered/Resolved]
  - Arrhythmia [Fatal]
